FAERS Safety Report 23674369 (Version 1)
Quarter: 2024Q1

REPORT INFORMATION
  Report Type: Spontaneous
  Country: BR (occurrence: BR)
  Receive Date: 20240326
  Receipt Date: 20240326
  Transmission Date: 20240410
  Serious: Yes (Hospitalization)
  Sender: FDA-Public Use
  Company Number: BR-NALPROPION PHARMACEUTICALS INC.-BR-2024CUR001438

PATIENT
  Age: 37 Year
  Sex: Female

DRUGS (1)
  1. CONTRAVE [Suspect]
     Active Substance: BUPROPION HYDROCHLORIDE\NALTREXONE HYDROCHLORIDE
     Indication: Binge eating
     Dosage: 8.0 MILLIGRAM(S) (8 MILLIGRAM(S), 1 IN 1 DAY)
     Route: 048
     Dates: start: 20240311, end: 20240313

REACTIONS (17)
  - Gait disturbance [Unknown]
  - Oropharyngeal discomfort [Not Recovered/Not Resolved]
  - Pharyngeal swelling [Not Recovered/Not Resolved]
  - Dizziness [Not Recovered/Not Resolved]
  - Nausea [Not Recovered/Not Resolved]
  - Headache [Not Recovered/Not Resolved]
  - Heart rate increased [Unknown]
  - Illness [Unknown]
  - Mobility decreased [Unknown]
  - Dysstasia [Unknown]
  - Discomfort [Unknown]
  - Dysphagia [Not Recovered/Not Resolved]
  - Photophobia [Unknown]
  - Vertigo [Not Recovered/Not Resolved]
  - Malaise [Unknown]
  - Asthenia [Not Recovered/Not Resolved]
  - Off label use [Unknown]

NARRATIVE: CASE EVENT DATE: 20240311
